FAERS Safety Report 23161096 (Version 3)
Quarter: 2023Q4

REPORT INFORMATION
  Report Type: Report from Study
  Country: US (occurrence: US)
  Receive Date: 20231108
  Receipt Date: 20231116
  Transmission Date: 20240109
  Serious: No
  Sender: FDA-Public Use
  Company Number: US-SANOFI-01829753

PATIENT
  Age: 87 Year
  Sex: Female

DRUGS (7)
  1. DUPIXENT [Suspect]
     Active Substance: DUPILUMAB
     Indication: Eczema
     Dosage: 300 MG, QOW
     Dates: start: 202306
  2. MACUHEALTH [Concomitant]
     Dosage: UNK
  3. MAGNESIUM [Concomitant]
     Active Substance: MAGNESIUM
     Dosage: UNK
  4. SPIRONOLACTONE [Concomitant]
     Active Substance: SPIRONOLACTONE
     Dosage: UNK
  5. D3 VITAMIN [Concomitant]
     Dosage: UNK
  6. CETIRIZINE HYDROCHLORIDE [Concomitant]
     Active Substance: CETIRIZINE HYDROCHLORIDE
     Dosage: 5 MG, QD
  7. RESTASIS [Concomitant]
     Active Substance: CYCLOSPORINE
     Dosage: 1 GTT BID OTHER

REACTIONS (3)
  - Injection site discolouration [Unknown]
  - Injection site pain [Unknown]
  - Dry eye [Unknown]

NARRATIVE: CASE EVENT DATE: 20231102
